FAERS Safety Report 10235256 (Version 6)
Quarter: 2014Q3

REPORT INFORMATION
  Report Type: Spontaneous
  Country: US (occurrence: US)
  Receive Date: 20140613
  Receipt Date: 20140916
  Transmission Date: 20150326
  Serious: No
  Sender: FDA-Public Use
  Company Number: US-PFIZER INC-2014161966

PATIENT
  Age: 59 Year
  Sex: Male
  Weight: 81.18 kg

DRUGS (5)
  1. IBUPROFEN. [Concomitant]
     Active Substance: IBUPROFEN
     Indication: COUGH
     Dosage: 200 MG, AS NEEDED (Q6HRS PRN )
     Route: 048
  2. VFEND [Suspect]
     Active Substance: VORICONAZOLE
     Indication: BRONCHOALVEOLAR LAVAGE
     Dosage: 300 MG, 2X/DAY (BID)
     Route: 048
     Dates: start: 20140627, end: 20140808
  3. VFEND [Suspect]
     Active Substance: VORICONAZOLE
     Indication: LUNG INFECTION
     Dosage: 300 MG, 2X/DAY
     Dates: start: 2014
  4. IBUPROFEN. [Concomitant]
     Active Substance: IBUPROFEN
     Indication: OBSTRUCTIVE AIRWAYS DISORDER
  5. PROBIOTICS [Concomitant]
     Active Substance: PROBIOTICS NOS
     Indication: PROPHYLAXIS OF VAGINAL FLORA IMBALANCE
     Dosage: UNK, EVERY SIX HOURS IN BETWEEN 12 HOURS OF TAKING VORICONAZOLE

REACTIONS (4)
  - Insomnia [Recovered/Resolved]
  - Abnormal dreams [Unknown]
  - Laboratory test abnormal [Unknown]
  - Hepatic enzyme increased [Unknown]

NARRATIVE: CASE EVENT DATE: 20140705
